FAERS Safety Report 9665424 (Version 1)
Quarter: 2013Q4

REPORT INFORMATION
  Report Type: Spontaneous
  Country: US (occurrence: None)
  Receive Date: 20131031
  Receipt Date: 20131031
  Transmission Date: 20140711
  Serious: Yes (Hospitalization, Other)
  Sender: FDA-Public Use
  Company Number: None

PATIENT
  Sex: Female
  Weight: 66.23 kg

DRUGS (4)
  1. ZOLPIDEM [Suspect]
     Indication: SLEEP DISORDER THERAPY
  2. BENZOTROPINE [Concomitant]
  3. GABAPENTIN [Concomitant]
  4. ABILIFY [Concomitant]

REACTIONS (2)
  - Bipolar disorder [None]
  - Hypothalamo-pituitary disorder [None]
